FAERS Safety Report 4839091-2 (Version None)
Quarter: 2005Q4

REPORT INFORMATION
  Report Type: 
  Country: None (occurrence: None)
  Receive Date: 20051129
  Receipt Date: 20051121
  Transmission Date: 20060501
  Serious: Yes (Hospitalization)
  Sender: FDA-Public Use
  Company Number: US-GLAXOSMITHKLINE-A0583465A

PATIENT
  Sex: Male

DRUGS (11)
  1. AVANDAMET [Suspect]
     Dates: end: 20051119
  2. AVANDIA [Suspect]
     Dosage: 8MG PER DAY
     Route: 048
     Dates: end: 20051119
  3. FUROSEMIDE [Concomitant]
  4. CARDURA [Concomitant]
  5. PRANDIN [Concomitant]
  6. DIGITEK [Concomitant]
  7. COUMADIN [Concomitant]
  8. LOTREL [Concomitant]
  9. GEMFIBROZIL [Concomitant]
  10. IRON [Concomitant]
  11. ASCORBIC ACID [Concomitant]

REACTIONS (1)
  - BLOOD GLUCOSE DECREASED [None]
